FAERS Safety Report 7540219-4 (Version None)
Quarter: 2011Q2

REPORT INFORMATION
  Report Type: 
  Country: None (occurrence: None)
  Receive Date: 20110610
  Receipt Date: 20110531
  Transmission Date: 20111010
  Serious: Yes (Hospitalization)
  Sender: FDA-Public Use
  Company Number: NO-NOVOPROD-325996

PATIENT
  Age: 42 Year
  Sex: Male
  Weight: 80 kg

DRUGS (3)
  1. LEVEMIR [Suspect]
     Indication: TYPE 1 DIABETES MELLITUS
     Dosage: REGIMEN IS TWICE DAILY
     Route: 058
     Dates: start: 20070901
  2. NOVORAPID [Suspect]
     Indication: TYPE 1 DIABETES MELLITUS
     Dosage: 20-40 IU/QD; REGIMEN IS 4-8 IU PRIOR TO EACH MEAL PLUS ADDITIONAL DOSES WHEN NEEDED
     Route: 058
     Dates: start: 20020101
  3. LAMOTRIGINE [Concomitant]
     Indication: EPILEPSY
     Dosage: 100 MG, BID
     Dates: start: 20080101, end: 20100401

REACTIONS (6)
  - HYPOGLYCAEMIC UNCONSCIOUSNESS [None]
  - SUBDURAL HAEMATOMA [None]
  - BLOOD GLUCOSE FLUCTUATION [None]
  - HYPOGLYCAEMIC COMA [None]
  - HYPOGLYCAEMIC SEIZURE [None]
  - INCORRECT DOSE ADMINISTERED [None]
